FAERS Safety Report 9815263 (Version 3)
Quarter: 2014Q1

REPORT INFORMATION
  Report Type: Spontaneous
  Country: GB (occurrence: GB)
  Receive Date: 20140114
  Receipt Date: 20140210
  Transmission Date: 20141002
  Serious: Yes (Hospitalization)
  Sender: FDA-Public Use
  Company Number: GB-JNJFOC-20140102612

PATIENT
  Age: 62 Year
  Sex: Female

DRUGS (8)
  1. DOXORUBICIN [Suspect]
     Indication: OVARIAN CANCER
     Route: 042
     Dates: start: 20131111
  2. EC145 [Suspect]
     Indication: OVARIAN CANCER
     Dosage: ON DAYS 1, 3, 5, 15, 17,AND 19
     Route: 042
     Dates: start: 20131111, end: 20131125
  3. PLACEBO [Suspect]
     Indication: OVARIAN CANCER
     Dosage: ON DAYS 1, 3, 5, 15, 17,AND 19
     Route: 042
     Dates: start: 20131111, end: 20131125
  4. EC20 [Suspect]
     Indication: SINGLE PHOTON EMISSION COMPUTERISED TOMOGRAM
     Dosage: ONCE
     Route: 042
     Dates: start: 20131023, end: 20131023
  5. FOLIC ACID [Suspect]
     Indication: SINGLE PHOTON EMISSION COMPUTERISED TOMOGRAM
     Dosage: ONCE
     Route: 042
     Dates: start: 20131023, end: 20131023
  6. TRAMADOL [Concomitant]
     Indication: PAIN
     Route: 048
     Dates: start: 20131122
  7. PARACETAMOL [Concomitant]
     Indication: PAIN
     Route: 048
  8. MOVICOL [Concomitant]
     Indication: PAIN
     Dosage: ONCE
     Route: 048
     Dates: start: 20131122

REACTIONS (1)
  - Abdominal pain [Recovered/Resolved]
